FAERS Safety Report 4577886-3 (Version None)
Quarter: 2005Q1

REPORT INFORMATION
  Report Type: 
  Country: None (occurrence: None)
  Receive Date: 20050209
  Receipt Date: 20050125
  Transmission Date: 20050727
  Serious: Yes (Death, Hospitalization)
  Sender: FDA-Public Use
  Company Number: JP_041105254

PATIENT
  Age: 72 Year
  Sex: Male
  Weight: 58 kg

DRUGS (3)
  1. GEMZAR [Suspect]
     Indication: PANCREATIC CARCINOMA
     Dosage: 1500 MG OTHER
     Dates: start: 20040712, end: 20040927
  2. TICLOPIDINE HCL [Concomitant]
  3. PURSENNID [Concomitant]

REACTIONS (9)
  - ANOREXIA [None]
  - BACK PAIN [None]
  - BONE MARROW DEPRESSION [None]
  - DYSGEUSIA [None]
  - NAUSEA [None]
  - OESOPHAGEAL CANDIDIASIS [None]
  - PNEUMONITIS [None]
  - PYREXIA [None]
  - RESPIRATORY FAILURE [None]
